FAERS Safety Report 8319469-5 (Version None)
Quarter: 2012Q2

REPORT INFORMATION
  Report Type: 
  Country: None (occurrence: None)
  Receive Date: 20120427
  Receipt Date: 20120424
  Transmission Date: 20120825
  Serious: Yes (Other)
  Sender: FDA-Public Use
  Company Number: JP-EISAI INC-E2090-02052-SPO-JP

PATIENT
  Sex: Male

DRUGS (14)
  1. LAC-B [Concomitant]
     Route: 048
     Dates: start: 20120309
  2. ZONISAMIDE [Suspect]
     Indication: EPILEPSY
     Route: 048
     Dates: start: 20111117, end: 20120323
  3. MIYA BM [Concomitant]
     Route: 048
     Dates: end: 20120308
  4. WARFARIN SODIUM [Concomitant]
     Indication: JUGULAR VEIN THROMBOSIS
     Route: 048
  5. FILGRASTIM [Suspect]
     Dates: start: 20120411
  6. DIAZEPAM [Concomitant]
     Indication: EPILEPSY
     Route: 048
  7. HOKUNALIN [Concomitant]
     Indication: BRONCHITIS
  8. LAMICTAL [Suspect]
     Indication: EPILEPSY
     Dates: start: 20120313, end: 20120322
  9. ALLOID G [Concomitant]
     Indication: GASTRITIS
     Route: 048
     Dates: end: 20120322
  10. MYSTAN [Concomitant]
     Route: 048
     Dates: start: 20120312
  11. EPINASTINE HYDROCHLORIDE [Concomitant]
     Indication: DRUG ERUPTION
     Route: 048
     Dates: end: 20120322
  12. ASPARA POTASSIUM [Concomitant]
     Indication: HYPOKALAEMIA
     Route: 048
  13. BISOPROLOL FUMARATE [Concomitant]
     Route: 048
     Dates: end: 20120322
  14. SODIUM BICARBONATE [Concomitant]
     Route: 048
     Dates: end: 20120322

REACTIONS (1)
  - AGRANULOCYTOSIS [None]
